FAERS Safety Report 12297759 (Version 1)
Quarter: 2016Q2

REPORT INFORMATION
  Report Type: Spontaneous
  Country: US (occurrence: US)
  Receive Date: 20160422
  Receipt Date: 20160422
  Transmission Date: 20160815
  Serious: Yes (Hospitalization, Other)
  Sender: FDA-Public Use
  Company Number: ADR-2015-01188

PATIENT
  Age: 38 Year
  Sex: Male

DRUGS (2)
  1. LIORESAL [Suspect]
     Active Substance: BACLOFEN
     Dosage: 940 MCG/DAY
     Route: 037
  2. LIORESAL [Suspect]
     Active Substance: BACLOFEN
     Dosage: 790 MCG/DAY
     Route: 037

REACTIONS (3)
  - Hypotonia [Unknown]
  - Psychotic disorder [Unknown]
  - Muscle tightness [Unknown]

NARRATIVE: CASE EVENT DATE: 201505
